FAERS Safety Report 7205857-7 (Version None)
Quarter: 2010Q4

REPORT INFORMATION
  Report Type: 
  Country: None (occurrence: None)
  Receive Date: 20101231
  Receipt Date: 20101221
  Transmission Date: 20110411
  Serious: Yes (Other)
  Sender: FDA-Public Use
  Company Number: DE-AMGEN-DEUSP2010012382

PATIENT

DRUGS (7)
  1. ENBREL [Suspect]
     Indication: RHEUMATOID ARTHRITIS
     Dosage: 50 MG, WEEKLY
     Dates: start: 20090519
  2. ENBREL [Suspect]
     Indication: PSORIATIC ARTHROPATHY
  3. ENBREL [Suspect]
  4. ARCOXIA [Concomitant]
     Dosage: UNK
  5. CYMBALTA [Concomitant]
     Dosage: UNK
  6. MICARDIS [Concomitant]
     Dosage: UNK
  7. METHOTREXATE [Concomitant]
     Dosage: 10 MG, UNK
     Route: 048

REACTIONS (2)
  - PARESIS [None]
  - SWELLING FACE [None]
